FAERS Safety Report 17893392 (Version 1)
Quarter: 2020Q2

REPORT INFORMATION
  Report Type: Report from Study
  Country: CL (occurrence: CL)
  Receive Date: 20200615
  Receipt Date: 20200615
  Transmission Date: 20200714
  Serious: Yes (Other)
  Sender: FDA-Public Use
  Company Number: CL-EMD SERONO-9095089

PATIENT
  Age: 28 Year
  Sex: Female

DRUGS (2)
  1. PREGABALIN. [Concomitant]
     Active Substance: PREGABALIN
     Indication: PRODUCT USED FOR UNKNOWN INDICATION
  2. REBIF [Suspect]
     Active Substance: INTERFERON BETA-1A
     Indication: MULTIPLE SCLEROSIS
     Route: 058
     Dates: start: 20181212

REACTIONS (13)
  - Pain [Recovered/Resolved]
  - Vomiting [Recovering/Resolving]
  - Arthralgia [Recovered/Resolved]
  - Hypokinesia [Recovering/Resolving]
  - Delirium [Recovering/Resolving]
  - Injection site mass [Recovering/Resolving]
  - Dehydration [Recovering/Resolving]
  - Depression [Recovering/Resolving]
  - Hypoaesthesia [Recovered/Resolved]
  - Gait inability [Recovering/Resolving]
  - Pyrexia [Recovered/Resolved]
  - Drug intolerance [Recovering/Resolving]
  - Insomnia [Recovering/Resolving]

NARRATIVE: CASE EVENT DATE: 20181212
